FAERS Safety Report 9239849 (Version 1)
Quarter: 2013Q2

REPORT INFORMATION
  Report Type: Spontaneous
  Country: US (occurrence: US)
  Receive Date: 20130418
  Receipt Date: 20130418
  Transmission Date: 20140414
  Serious: Yes (Other)
  Sender: FDA-Public Use
  Company Number: US-PFIZER INC-2013121202

PATIENT
  Age: 58 Year
  Sex: Female
  Weight: 49.89 kg

DRUGS (2)
  1. LYRICA [Suspect]
     Indication: PAIN
     Dosage: UNK, 3X/DAY
     Route: 048
     Dates: start: 201205, end: 20130109
  2. ESTROGENS [Concomitant]
     Dosage: UNK

REACTIONS (2)
  - Hallucination [Recovered/Resolved]
  - Abnormal dreams [Not Recovered/Not Resolved]
